FAERS Safety Report 23556587 (Version 3)
Quarter: 2024Q2

REPORT INFORMATION
  Report Type: Report from Study
  Country: US (occurrence: US)
  Receive Date: 20240223
  Receipt Date: 20240404
  Transmission Date: 20240715
  Serious: No
  Sender: FDA-Public Use
  Company Number: US-AMGEN-USASP2024036191

PATIENT
  Age: 73 Year
  Sex: Male

DRUGS (1)
  1. REPATHA [Suspect]
     Active Substance: EVOLOCUMAB
     Indication: Blood cholesterol abnormal
     Dosage: 420 MILLIGRAM/3.5ML , QMO
     Route: 065
     Dates: start: 20240217

REACTIONS (2)
  - Incorrect dose administered by product [Unknown]
  - Injection site mass [Unknown]

NARRATIVE: CASE EVENT DATE: 20240217
